FAERS Safety Report 8797057 (Version 1)
Quarter: 2012Q4

REPORT INFORMATION
  Report Type: 
  Country: US (occurrence: US)
  Receive Date: 20120919
  Receipt Date: 20120919
  Transmission Date: 20130627
  Serious: Yes (Other)
  Sender: FDA-Public Use
  Company Number: US-ELI_LILLY_AND_COMPANY-US201209002397

PATIENT
  Sex: Male

DRUGS (2)
  1. HUMULIN 30% REGULAR, 70% NPH [Suspect]
     Indication: DIABETES MELLITUS
     Dosage: 30 u, each morning
     Dates: start: 2011
  2. HUMULIN 30% REGULAR, 70% NPH [Suspect]
     Dosage: 30 u, each evening
     Dates: start: 2011

REACTIONS (2)
  - Renal failure [Unknown]
  - Drug dose omission [Recovered/Resolved]
